FAERS Safety Report 6273490-X (Version None)
Quarter: 2009Q3

REPORT INFORMATION
  Report Type: 
  Country: None (occurrence: None)
  Receive Date: 20090720
  Receipt Date: 20090713
  Transmission Date: 20100115
  Serious: Yes (Other)
  Sender: FDA-Public Use
  Company Number: BR-BAYER-200918879LA

PATIENT
  Age: 27 Year
  Sex: Female
  Weight: 81 kg

DRUGS (3)
  1. YASMIN [Suspect]
     Indication: CONTRACEPTION
     Dosage: 21D/7D
     Route: 048
     Dates: start: 20080801, end: 20081201
  2. DIANE [Suspect]
     Indication: CONTRACEPTION
     Dosage: STARTED AT THE SECOND DAY OF MENSTRUATION
     Route: 048
     Dates: start: 20090705
  3. DACTIL OB [Concomitant]
     Indication: PROPHYLAXIS OF ABORTION
     Route: 065
     Dates: start: 20090201, end: 20090201

REACTIONS (12)
  - ABDOMINAL PAIN [None]
  - ABORTION SPONTANEOUS [None]
  - BLOOD PRESSURE INCREASED [None]
  - BREAST PAIN [None]
  - CHEST PAIN [None]
  - DIARRHOEA [None]
  - HEADACHE [None]
  - IRRITABILITY [None]
  - NAUSEA [None]
  - PREGNANCY ON ORAL CONTRACEPTIVE [None]
  - VAGINAL HAEMORRHAGE [None]
  - WEIGHT INCREASED [None]
